FAERS Safety Report 23144048 (Version 1)
Quarter: 2023Q4

REPORT INFORMATION
  Report Type: Report from Study
  Country: CA (occurrence: CA)
  Receive Date: 20231103
  Receipt Date: 20231103
  Transmission Date: 20240109
  Serious: Yes (Other)
  Sender: FDA-Public Use
  Company Number: CA-UCBSA-2023017556

PATIENT
  Age: 63 Year
  Sex: Female

DRUGS (8)
  1. CERTOLIZUMAB PEGOL [Suspect]
     Active Substance: CERTOLIZUMAB PEGOL
     Indication: Rheumatoid arthritis
     Dosage: 400 MILLIGRAM, EV 2 WEEKS(QOW)
     Route: 058
     Dates: start: 20230405
  2. CERTOLIZUMAB PEGOL [Suspect]
     Active Substance: CERTOLIZUMAB PEGOL
     Dosage: UNK
     Route: 058
     Dates: start: 20230419
  3. CERTOLIZUMAB PEGOL [Suspect]
     Active Substance: CERTOLIZUMAB PEGOL
     Dosage: 400 MILLIGRAM, EV 4 WEEKS
     Route: 058
     Dates: end: 20231027
  4. BILASTINE [Concomitant]
     Active Substance: BILASTINE
     Indication: Product used for unknown indication
     Dosage: UNK
  5. VALACYCLOVIR [Concomitant]
     Active Substance: VALACYCLOVIR HYDROCHLORIDE
     Indication: Herpes zoster
     Dosage: 500 MILLIGRAM DAILY
  6. FML [Concomitant]
     Active Substance: FLUOROMETHOLONE
     Indication: Product used for unknown indication
     Dosage: 1 DROP, ONCE DAILY (QD)
  7. CYTO MATRIX OMEGA MATRIX [Concomitant]
     Indication: Product used for unknown indication
     Dosage: UNK
  8. BOSWELLIA COMPLEX [BOSWELLIA SACRA] [Concomitant]
     Indication: Product used for unknown indication
     Dosage: UNK

REACTIONS (17)
  - Drug-induced liver injury [Unknown]
  - Dysgeusia [Unknown]
  - Throat tightness [Recovering/Resolving]
  - Upper-airway cough syndrome [Unknown]
  - Ear pain [Unknown]
  - Arthralgia [Recovering/Resolving]
  - Dry mouth [Recovering/Resolving]
  - Fatigue [Unknown]
  - Injection site hypoaesthesia [Unknown]
  - Arthropod sting [Unknown]
  - Contusion [Unknown]
  - Abdominal pain lower [Unknown]
  - Alanine aminotransferase increased [Recovering/Resolving]
  - Constipation [Unknown]
  - Product storage error [Unknown]
  - Drug ineffective [Unknown]
  - Inappropriate schedule of product administration [Unknown]

NARRATIVE: CASE EVENT DATE: 20230405
